FAERS Safety Report 8418997-1 (Version None)
Quarter: 2012Q2

REPORT INFORMATION
  Report Type: 
  Country: None (occurrence: None)
  Receive Date: 20120607
  Receipt Date: 20120604
  Transmission Date: 20120825
  Serious: Yes (Death, Hospitalization)
  Sender: FDA-Public Use
  Company Number: PHHO2012US008388

PATIENT
  Sex: Female

DRUGS (8)
  1. ASPARAGINASE [Concomitant]
  2. CYCLOPHOSPHAMIDE [Concomitant]
  3. DOXORUBICIN HCL [Concomitant]
  4. BUSULFAN [Concomitant]
  5. DEXAMETHASONE [Concomitant]
  6. CYTARABINE [Concomitant]
  7. AFINITOR [Suspect]
     Indication: ACUTE LYMPHOCYTIC LEUKAEMIA
     Dosage: UNK
     Dates: start: 20111005
  8. METHOTREXATE [Concomitant]

REACTIONS (3)
  - CYSTITIS VIRAL [None]
  - DISEASE PROGRESSION [None]
  - BONE MARROW FAILURE [None]
